FAERS Safety Report 19152306 (Version 1)
Quarter: 2021Q2

REPORT INFORMATION
  Report Type: Spontaneous
  Country: US (occurrence: US)
  Receive Date: 20210419
  Receipt Date: 20210419
  Transmission Date: 20210717
  Serious: No
  Sender: FDA-Public Use
  Company Number: US-JNJFOC-20210419676

PATIENT
  Age: 20 Year
  Sex: Male
  Weight: 70.37 kg

DRUGS (2)
  1. STELARA [Suspect]
     Active Substance: USTEKINUMAB
  2. STELARA [Suspect]
     Active Substance: USTEKINUMAB
     Indication: CROHN^S DISEASE
     Route: 058
     Dates: start: 202009

REACTIONS (6)
  - Heart rate increased [Unknown]
  - Carbon dioxide decreased [Unknown]
  - Skin haemorrhage [Unknown]
  - Electrocardiogram abnormal [Unknown]
  - Vascular rupture [Unknown]
  - Groin pain [Unknown]

NARRATIVE: CASE EVENT DATE: 202103
